FAERS Safety Report 9171136 (Version 1)
Quarter: 2013Q1

REPORT INFORMATION
  Report Type: Report from Study
  Country: GB (occurrence: GB)
  Receive Date: 20130319
  Receipt Date: 20130319
  Transmission Date: 20140127
  Serious: Yes (Death)
  Sender: FDA-Public Use
  Company Number: GB-AMGEN-GBRCT2013018297

PATIENT
  Age: 88 Year
  Sex: Female

DRUGS (2)
  1. ETANERCEPT [Suspect]
     Indication: RHEUMATOID ARTHRITIS
     Dosage: 25 MG, 2 TIMES/WK
     Dates: start: 20040315, end: 20040922
  2. HYDROXYCHLOROQUINE [Concomitant]
     Dosage: UNK UNK, UNK

REACTIONS (1)
  - Cardiopulmonary failure [Fatal]
